FAERS Safety Report 25021387 (Version 1)
Quarter: 2025Q1

REPORT INFORMATION
  Report Type: Spontaneous
  Country: US (occurrence: US)
  Receive Date: 20250228
  Receipt Date: 20250228
  Transmission Date: 20250409
  Serious: No
  Sender: ELI LILLY AND COMPANY
  Company Number: US-ELI_LILLY_AND_COMPANY-US202502020733

PATIENT
  Age: 63 Year
  Sex: Female

DRUGS (5)
  1. HUMALOG [Suspect]
     Active Substance: INSULIN LISPRO
     Indication: Diabetes mellitus
     Route: 058
     Dates: start: 2022
  2. HUMALOG [Suspect]
     Active Substance: INSULIN LISPRO
     Indication: Diabetes mellitus
     Route: 058
     Dates: start: 2022
  3. HUMALOG [Suspect]
     Active Substance: INSULIN LISPRO
     Route: 058
  4. HUMALOG [Suspect]
     Active Substance: INSULIN LISPRO
     Route: 058
  5. LANTUS [Concomitant]
     Active Substance: INSULIN GLARGINE
     Indication: Diabetes mellitus

REACTIONS (2)
  - Accidental underdose [Unknown]
  - Blood glucose increased [Not Recovered/Not Resolved]
